FAERS Safety Report 15923516 (Version 1)
Quarter: 2019Q1

REPORT INFORMATION
  Report Type: Spontaneous
  Country: US (occurrence: US)
  Receive Date: 20190206
  Receipt Date: 20190206
  Transmission Date: 20190417
  Serious: Yes (Other)
  Sender: FDA-Public Use
  Company Number: None

PATIENT
  Age: 37 Year
  Sex: Female
  Weight: 77.4 kg

DRUGS (5)
  1. ESCITALOPRAM [Concomitant]
     Active Substance: ESCITALOPRAM OXALATE
  2. OMEPRAZOLE. [Concomitant]
     Active Substance: OMEPRAZOLE
  3. MIBELAS 24 FE [Concomitant]
     Active Substance: ETHINYL ESTRADIOL\NORETHINDRONE ACETATE
  4. LOSARTAN 25MG TABLETS [Suspect]
     Active Substance: LOSARTAN POTASSIUM
     Indication: HYPERTENSION
     Dosage: ?          QUANTITY:1.5 TABLET(S);?
     Route: 048
     Dates: start: 20190117, end: 20190204
  5. ALIGN PROBIOTIC [Concomitant]

REACTIONS (3)
  - Product substitution issue [None]
  - Drug ineffective [None]
  - Hypertension [None]

NARRATIVE: CASE EVENT DATE: 20190203
